FAERS Safety Report 8392055-7 (Version None)
Quarter: 2012Q2

REPORT INFORMATION
  Report Type: 
  Country: None (occurrence: None)
  Receive Date: 20120529
  Receipt Date: 20120528
  Transmission Date: 20120825
  Serious: Yes (Death)
  Sender: FDA-Public Use
  Company Number: CA-ABBOTT-12P-028-0939826-00

PATIENT
  Sex: Male

DRUGS (1)
  1. HUMIRA [Suspect]
     Indication: PSORIASIS
     Route: 058
     Dates: start: 20090408, end: 20111101

REACTIONS (5)
  - VOMITING [None]
  - LUNG NEOPLASM MALIGNANT [None]
  - GASTRIC CANCER [None]
  - NAUSEA [None]
  - HEPATIC NEOPLASM MALIGNANT [None]
